FAERS Safety Report 5259896-6 (Version None)
Quarter: 2007Q1

REPORT INFORMATION
  Report Type: 
  Country: None (occurrence: None)
  Receive Date: 20070307
  Receipt Date: 20070227
  Transmission Date: 20070707
  Serious: Yes (Other)
  Sender: FDA-Public Use
  Company Number: 236312

PATIENT
  Age: 40 Year
  Sex: Female
  Weight: 79.4 kg

DRUGS (10)
  1. XOLAIR [Suspect]
     Indication: DRUG USE FOR UNKNOWN INDICATION
     Dosage: 2/MONTH, SUBUCUTANEOUS
     Route: 058
     Dates: start: 20020701
  2. INHALER (TYPE UNKNOWN) (GENERIC COMPENENT (S) NOT KNOWN) [Concomitant]
  3. XOPENEX [Concomitant]
  4. ADVAIR DISKUS 100/50 [Concomitant]
  5. SINGULAR (MONTELUKAST SODIM) [Concomitant]
  6. PREVACID [Concomitant]
  7. LEVOXYL [Concomitant]
  8. ASTELIN [Concomitant]
  9. FLONASE [Concomitant]
  10. ALBUTEROL (ALBUTEROL/ALBUTEROL SULFATE) [Concomitant]

REACTIONS (2)
  - ANAPHYLACTIC REACTION [None]
  - DRUG INEFFECTIVE [None]
